FAERS Safety Report 18484064 (Version 4)
Quarter: 2025Q1

REPORT INFORMATION
  Report Type: Spontaneous
  Country: IT (occurrence: IT)
  Receive Date: 20201110
  Receipt Date: 20250312
  Transmission Date: 20250409
  Serious: Yes (Hospitalization, Other)
  Sender: AUROBINDO
  Company Number: IT-MINISAL02-640687

PATIENT
  Age: 31 Year
  Sex: Female
  Weight: 55 kg

DRUGS (2)
  1. ALPRAZOLAM [Suspect]
     Active Substance: ALPRAZOLAM
     Indication: Product used for unknown indication
     Route: 048
     Dates: start: 20200913, end: 20200913
  2. ZOLPIDEM [Suspect]
     Active Substance: ZOLPIDEM TARTRATE
     Indication: Product used for unknown indication
     Route: 048
     Dates: start: 20200913, end: 20200913

REACTIONS (3)
  - Substance abuse [Recovering/Resolving]
  - Sopor [Recovering/Resolving]
  - Intentional self-injury [Unknown]

NARRATIVE: CASE EVENT DATE: 20200913
